FAERS Safety Report 9402220 (Version 1)
Quarter: 2013Q3

REPORT INFORMATION
  Report Type: Spontaneous
  Country: US (occurrence: US)
  Receive Date: 20130716
  Receipt Date: 20130716
  Transmission Date: 20140515
  Serious: No
  Sender: FDA-Public Use
  Company Number: US-TEVA-411329USA

PATIENT
  Age: 43 Year
  Sex: Female
  Weight: 52.66 kg

DRUGS (2)
  1. PARAGARD 380A [Suspect]
     Indication: CONTRACEPTION
  2. OMEPRAZOLE [Concomitant]
     Dosage: 20 MILLIGRAM DAILY;

REACTIONS (2)
  - Device expulsion [Recovered/Resolved]
  - Metrorrhagia [Unknown]
